FAERS Safety Report 4757062-1 (Version None)
Quarter: 2005Q3

REPORT INFORMATION
  Report Type: 
  Country: None (occurrence: None)
  Receive Date: 20050829
  Receipt Date: 20050829
  Transmission Date: 20060218
  Serious: Yes (Other)
  Sender: FDA-Public Use
  Company Number: None

PATIENT
  Age: 3 Year
  Sex: Male
  Weight: 14.0615 kg

DRUGS (4)
  1. ALBUTEROL SULATE [Suspect]
     Indication: ASTHMA
     Dosage: 1 NEB ONCE INHAL
     Route: 055
     Dates: start: 20050812, end: 20050812
  2. ALBUTEROL SULATE [Suspect]
     Indication: CONDITION AGGRAVATED
     Dosage: 1 NEB ONCE INHAL
     Route: 055
     Dates: start: 20050812, end: 20050812
  3. ORAPRED RACEMIC EPI [Concomitant]
  4. ALBUTEROL [Concomitant]

REACTIONS (4)
  - ANGIONEUROTIC OEDEMA [None]
  - GLOSSODYNIA [None]
  - PHARMACEUTICAL PRODUCT COMPLAINT [None]
  - URTICARIA [None]
